FAERS Safety Report 4948312-7 (Version None)
Quarter: 2006Q1

REPORT INFORMATION
  Report Type: 
  Country: None (occurrence: None)
  Receive Date: 20060320
  Receipt Date: 20060309
  Transmission Date: 20060701
  Serious: Yes (Disabling)
  Sender: FDA-Public Use
  Company Number: BE-ROCHE-439682

PATIENT
  Age: 46 Year
  Sex: Male

DRUGS (2)
  1. PEGASYS [Suspect]
     Route: 058
     Dates: start: 20050915
  2. COPEGUS [Suspect]
     Dosage: TAKEN DAILY.
     Route: 048
     Dates: start: 20050915

REACTIONS (2)
  - BALANCE DISORDER [None]
  - DYSKINESIA [None]
